FAERS Safety Report 8176651-8 (Version None)
Quarter: 2012Q1

REPORT INFORMATION
  Report Type: 
  Country: None (occurrence: None)
  Receive Date: 20120301
  Receipt Date: 20120223
  Transmission Date: 20120608
  Serious: Yes (Hospitalization)
  Sender: FDA-Public Use
  Company Number: JP-EISAI INC-E2090-01480-SPO-JP

PATIENT
  Sex: Male

DRUGS (10)
  1. OSPAIN [Concomitant]
     Dosage: 200 MG DAILY
     Route: 048
  2. DANTRIUM [Concomitant]
     Dosage: 25 MG DAILY
     Route: 048
  3. AMLODIPINE BESYLATE [Concomitant]
     Dosage: 1.25 MG DAILY
     Route: 048
  4. VALPROATE SODIUM [Concomitant]
     Dosage: 600 MG DAILY
     Route: 048
  5. SELBEX [Concomitant]
     Dosage: 4 MG DAILY
  6. ZONISAMIDE [Suspect]
     Dosage: 200 MG DAILY
     Route: 048
     Dates: start: 20110112, end: 20110130
  7. CANDESARTAN CILEXETIL [Concomitant]
     Dosage: 4 MG DAILY
  8. MAGNESIUM OXIDE [Concomitant]
     Dosage: 660 MG DAILY
     Route: 048
  9. VALERIN [Concomitant]
     Dosage: 15 MG DAILY
  10. LANSOPRAZOLE [Concomitant]

REACTIONS (2)
  - TOXIC EPIDERMAL NECROLYSIS [None]
  - WHITE BLOOD CELL COUNT DECREASED [None]
